FAERS Safety Report 24427864 (Version 3)
Quarter: 2024Q4

REPORT INFORMATION
  Report Type: Spontaneous
  Country: US (occurrence: US)
  Receive Date: 20241011
  Receipt Date: 20241205
  Transmission Date: 20250115
  Serious: No
  Sender: UNITED THERAPEUTICS
  Company Number: US-UNITED THERAPEUTICS-UNT-2024-031472

PATIENT
  Sex: Male
  Weight: 165.08 kg

DRUGS (14)
  1. TYVASO DPI [Suspect]
     Active Substance: TREPROSTINIL
     Indication: Pulmonary arterial hypertension
     Dosage: 48 ?G, QID
     Dates: start: 2024
  2. TYVASO DPI [Suspect]
     Active Substance: TREPROSTINIL
     Dosage: UNK
  3. TYVASO DPI [Suspect]
     Active Substance: TREPROSTINIL
     Indication: Pulmonary arterial hypertension
     Dosage: UNK
  4. AFRIN [Suspect]
     Active Substance: OXYMETAZOLINE
     Indication: Product used for unknown indication
     Dosage: UNK
  5. SALINE [Suspect]
     Active Substance: SODIUM CHLORIDE
     Indication: Product used for unknown indication
     Dosage: UNK
  6. HYDROGEN PEROXIDE [Suspect]
     Active Substance: HYDROGEN PEROXIDE
     Indication: Product used for unknown indication
     Dosage: UNK
  7. LASIX [Suspect]
     Active Substance: FUROSEMIDE
     Indication: Product used for unknown indication
     Dosage: UNK
  8. ALLOPURINOL [Concomitant]
     Active Substance: ALLOPURINOL
     Indication: Product used for unknown indication
     Dosage: UNK
  9. POTASSIUM CHLORIDE [Concomitant]
     Active Substance: POTASSIUM CHLORIDE
     Indication: Product used for unknown indication
     Dosage: UNK
  10. JARDIANCE [Concomitant]
     Active Substance: EMPAGLIFLOZIN
     Indication: Product used for unknown indication
     Dosage: UNK
  11. GABAPENTIN [Concomitant]
     Active Substance: GABAPENTIN
     Indication: Product used for unknown indication
     Dosage: UNK
  12. LEVOTHYROXINE SODIUM [Concomitant]
     Active Substance: LEVOTHYROXINE SODIUM
     Indication: Product used for unknown indication
     Dosage: UNK
  13. PREDNISONE [Concomitant]
     Active Substance: PREDNISONE
     Indication: Product used for unknown indication
     Dosage: UNK
  14. OXYGEN [Concomitant]
     Active Substance: OXYGEN
     Indication: Product used for unknown indication
     Dosage: UNK

REACTIONS (8)
  - Hypoacusis [Not Recovered/Not Resolved]
  - Flushing [Unknown]
  - Headache [Unknown]
  - Blood pressure decreased [Unknown]
  - Hot flush [Unknown]
  - Tinnitus [Unknown]
  - Drug interaction [Unknown]
  - Therapy non-responder [Unknown]

NARRATIVE: CASE EVENT DATE: 20240101
